FAERS Safety Report 7952262-1 (Version None)
Quarter: 2011Q4

REPORT INFORMATION
  Report Type: 
  Country: None (occurrence: None)
  Receive Date: 20111201
  Receipt Date: 20111117
  Transmission Date: 20120403
  Serious: Yes (Congenital Anomaly, Other)
  Sender: FDA-Public Use
  Company Number: DE-ARROW GEN-2011-19478

PATIENT
  Sex: Male
  Weight: 4.12 kg

DRUGS (5)
  1. SERTRALINE HYDROCHLORIDE [Suspect]
     Dosage: 100 MG, DAILY
     Route: 064
     Dates: start: 20110119, end: 20110802
  2. SERTRALINE HYDROCHLORIDE [Suspect]
     Indication: DEPRESSION
     Dosage: 75 MG, DAILY
     Route: 064
     Dates: start: 20101220, end: 20110118
  3. LORAZEPAM [Concomitant]
     Indication: DEPRESSION
     Dosage: 0.5 MG, DAILY
     Route: 064
     Dates: start: 20101220, end: 20110126
  4. FOLIC ACID [Concomitant]
     Indication: PROPHYLAXIS OF NEURAL TUBE DEFECT
     Dosage: 0.8 MG, DAILY
     Route: 064
     Dates: start: 20101104
  5. VOMEX A                            /00019501/ [Concomitant]
     Indication: VOMITING IN PREGNANCY
     Dosage: BETWEEN GW 9 AND 17 PROBABLY ONLY TWICE TAKEN
     Route: 064
     Dates: end: 20110303

REACTIONS (7)
  - DRUG WITHDRAWAL SYNDROME NEONATAL [None]
  - NEONATAL RESPIRATORY DISTRESS SYNDROME [None]
  - HAEMANGIOMA CONGENITAL [None]
  - PETECHIAE [None]
  - TRANSAMINASES INCREASED [None]
  - LARGE FOR DATES BABY [None]
  - ATRIAL SEPTAL DEFECT [None]
